FAERS Safety Report 6196633-5 (Version None)
Quarter: 2009Q2

REPORT INFORMATION
  Report Type: 
  Country: None (occurrence: None)
  Receive Date: 20090520
  Receipt Date: 20090511
  Transmission Date: 20091009
  Serious: Yes (Other)
  Sender: FDA-Public Use
  Company Number: A0753043A

PATIENT
  Age: 43 Year
  Sex: Female
  Weight: 61.4 kg

DRUGS (7)
  1. LAMICTAL [Suspect]
     Dosage: 25MG VARIABLE DOSE
     Route: 048
     Dates: start: 20081016
  2. WELLBUTRIN [Concomitant]
     Dosage: 150MG PER DAY
     Route: 048
  3. CELEXA [Concomitant]
     Dosage: 1.5TAB PER DAY
     Route: 048
  4. XANAX [Concomitant]
  5. VITAMINS [Concomitant]
  6. CALCIUM [Concomitant]
     Dosage: 600MG TWICE PER DAY
     Route: 048
  7. OMEGA 3 FATTY ACIDS [Concomitant]
     Dosage: 1G PER DAY

REACTIONS (15)
  - AMNESIA [None]
  - APHASIA [None]
  - CONFUSIONAL STATE [None]
  - DIZZINESS [None]
  - DRUG DISPENSING ERROR [None]
  - ECCHYMOSIS [None]
  - FEELING ABNORMAL [None]
  - HEADACHE [None]
  - HYPERACUSIS [None]
  - MEMORY IMPAIRMENT [None]
  - MENTAL STATUS CHANGES [None]
  - MIDDLE INSOMNIA [None]
  - MIGRAINE [None]
  - OVERDOSE [None]
  - VOMITING [None]
